FAERS Safety Report 24817840 (Version 2)
Quarter: 2025Q1

REPORT INFORMATION
  Report Type: Report from Study
  Country: US (occurrence: US)
  Receive Date: 20250108
  Receipt Date: 20250213
  Transmission Date: 20250409
  Serious: Yes (Other)
  Sender: JOHNSON AND JOHNSON
  Company Number: US-JNJFOC-20241285630

PATIENT
  Age: 21 Year
  Sex: Male

DRUGS (4)
  1. STELARA [Suspect]
     Active Substance: USTEKINUMAB
     Indication: Crohn^s disease
     Route: 058
     Dates: start: 20241225
  2. STELARA [Suspect]
     Active Substance: USTEKINUMAB
  3. PREDNISONE [Concomitant]
     Active Substance: PREDNISONE
  4. ACCUTANE [Concomitant]
     Active Substance: ISOTRETINOIN

REACTIONS (3)
  - Crohn^s disease [Not Recovered/Not Resolved]
  - Device defective [Unknown]
  - Drug ineffective [Unknown]

NARRATIVE: CASE EVENT DATE: 20241201
